FAERS Safety Report 18104806 (Version 6)
Quarter: 2021Q1

REPORT INFORMATION
  Report Type: Report from Study
  Country: JP (occurrence: JP)
  Receive Date: 20200804
  Receipt Date: 20210304
  Transmission Date: 20210419
  Serious: Yes (Hospitalization, Other)
  Sender: FDA-Public Use
  Company Number: JP-BRISTOL-MYERS SQUIBB COMPANY-BMS-2020-059888

PATIENT
  Age: 49 Year
  Sex: Male
  Weight: 62 kg

DRUGS (25)
  1. NIVOLUMAB [Suspect]
     Active Substance: NIVOLUMAB
     Dosage: 240 MILLIGRAM, ONE TIME DOSE
     Route: 065
     Dates: start: 20200427, end: 20200427
  2. NIVOLUMAB [Suspect]
     Active Substance: NIVOLUMAB
     Dosage: 240 MILLIGRAM, ONE TIME DOSE
     Route: 065
     Dates: start: 20200817, end: 20200817
  3. NIVOLUMAB [Suspect]
     Active Substance: NIVOLUMAB
     Dosage: 240 MILLIGRAM, ONE TIME DOSE
     Route: 065
     Dates: start: 20200928, end: 20200928
  4. NIVOLUMAB [Suspect]
     Active Substance: NIVOLUMAB
     Dosage: 240 MILLIGRAM, ONE TIME DOSE
     Route: 065
     Dates: start: 20201019, end: 20201019
  5. LIXIANA OD [Concomitant]
     Active Substance: EDOXABAN TOSYLATE
     Indication: PRODUCT USED FOR UNKNOWN INDICATION
     Dosage: 30 MILLIGRAM, QD
     Dates: start: 20200516, end: 20200529
  6. CORTROSYN Z [TETRACOSACTIDE ACETATE] [Concomitant]
     Indication: PRODUCT USED FOR UNKNOWN INDICATION
     Dosage: 0.5 MILLIGRAM, QD
     Dates: start: 20200525, end: 20200527
  7. NIVOLUMAB [Suspect]
     Active Substance: NIVOLUMAB
     Dosage: 240 MILLIGRAM, ONE TIME DOSE
     Dates: start: 20200907, end: 20200907
  8. NIVOLUMAB [Suspect]
     Active Substance: NIVOLUMAB
     Indication: METASTATIC RENAL CELL CARCINOMA
     Dosage: 240 MILLIGRAM, ONE TIME DOSE
     Route: 065
     Dates: start: 20200106, end: 20200106
  9. CELECOX [Concomitant]
     Active Substance: CELECOXIB
     Indication: PRODUCT USED FOR UNKNOWN INDICATION
     Dosage: 100 MILLIGRAM, BID
     Dates: start: 20200515
  10. NIVOLUMAB [Suspect]
     Active Substance: NIVOLUMAB
     Dosage: 240 MILLIGRAM, ONE TIME DOSE
     Route: 065
     Dates: start: 20200309, end: 20200309
  11. NIVOLUMAB [Suspect]
     Active Substance: NIVOLUMAB
     Dosage: 240 MILLIGRAM, ONE TIME DOSE
     Route: 065
     Dates: start: 20200706, end: 20200706
  12. IPILIMUMAB [Suspect]
     Active Substance: IPILIMUMAB
     Indication: METASTATIC RENAL CELL CARCINOMA
     Dosage: 1 MILLIGRAM/KILOGRAM, ONE TIME DOSE
     Route: 065
     Dates: start: 20200106, end: 20200106
  13. IPILIMUMAB [Suspect]
     Active Substance: IPILIMUMAB
     Dosage: 1 MILLIGRAM/KILOGRAM, ONE TIME DOSE
     Route: 065
     Dates: start: 20200217, end: 20200217
  14. NIVOLUMAB [Suspect]
     Active Substance: NIVOLUMAB
     Dosage: 240 MILLIGRAM, ONE TIME DOSE
     Route: 065
     Dates: start: 20200127, end: 20200127
  15. NIVOLUMAB [Suspect]
     Active Substance: NIVOLUMAB
     Dosage: 240 MILLIGRAM, ONE TIME DOSE
     Route: 065
     Dates: start: 20200406, end: 20200406
  16. NIVOLUMAB [Suspect]
     Active Substance: NIVOLUMAB
     Dosage: 240 MILLIGRAM, ONE TIME DOSE
     Route: 065
     Dates: start: 20201130, end: 20201130
  17. IPILIMUMAB [Suspect]
     Active Substance: IPILIMUMAB
     Dosage: 1 MILLIGRAM/KILOGRAM, ONE TIME DOSE
     Route: 065
     Dates: start: 20200127, end: 20200127
  18. IPILIMUMAB [Suspect]
     Active Substance: IPILIMUMAB
     Dosage: 1 MILLIGRAM/KILOGRAM, ONE TIME DOSE
     Route: 065
     Dates: start: 20200309, end: 20200309
  19. DECADRON [Concomitant]
     Active Substance: DEXAMETHASONE
     Indication: PRODUCT USED FOR UNKNOWN INDICATION
     Dosage: 0.5 MILLIGRAM, QD
     Dates: start: 20200520, end: 20200527
  20. NIVOLUMAB [Suspect]
     Active Substance: NIVOLUMAB
     Dosage: 240 MILLIGRAM, ONE TIME DOSE
     Route: 065
     Dates: start: 20200217, end: 20200217
  21. RANMARK [Concomitant]
     Active Substance: DENOSUMAB
     Indication: PRODUCT USED FOR UNKNOWN INDICATION
     Dosage: 120 MILLIGRAM
     Dates: start: 20191213
  22. NIVOLUMAB [Suspect]
     Active Substance: NIVOLUMAB
     Dosage: 240 MILLIGRAM, ONE TIME DOSE
     Route: 065
     Dates: start: 20200615, end: 20200615
  23. NIVOLUMAB [Suspect]
     Active Substance: NIVOLUMAB
     Dosage: 240 MILLIGRAM, ONE TIME DOSE
     Route: 065
     Dates: start: 20201102, end: 20201102
  24. DENOTAS [Concomitant]
     Active Substance: CALCIUM CARBONATE\CHOLECALCIFEROL\MAGNESIUM CARBONATE
     Indication: PRODUCT USED FOR UNKNOWN INDICATION
     Dosage: 2 TABLETS, QD
     Dates: start: 20191223
  25. NIVOLUMAB [Suspect]
     Active Substance: NIVOLUMAB
     Dosage: 240 MILLIGRAM, ONE TIME DOSE
     Route: 065
     Dates: start: 20200727, end: 20200727

REACTIONS (4)
  - Diabetic ketoacidosis [Unknown]
  - Adrenocorticotropic hormone deficiency [Unknown]
  - Adrenal insufficiency [Not Recovered/Not Resolved]
  - Fulminant type 1 diabetes mellitus [Not Recovered/Not Resolved]

NARRATIVE: CASE EVENT DATE: 20200316
